FAERS Safety Report 4741569-7 (Version None)
Quarter: 2005Q3

REPORT INFORMATION
  Report Type: 
  Country: None (occurrence: None)
  Receive Date: 20050810
  Receipt Date: 20050801
  Transmission Date: 20060218
  Serious: Yes (Hospitalization)
  Sender: FDA-Public Use
  Company Number: JP-ABBOTT-05P-087-0307243-00

PATIENT
  Age: 41 Year
  Sex: Male

DRUGS (1)
  1. LIPIDIL CAPSULES [Suspect]
     Indication: HYPERLIPIDAEMIA
     Route: 048
     Dates: start: 20050617, end: 20050713

REACTIONS (1)
  - LIVER DISORDER [None]
